FAERS Safety Report 21008235 (Version 1)
Quarter: 2022Q2

REPORT INFORMATION
  Report Type: Report from Study
  Country: GT (occurrence: GT)
  Receive Date: 20220627
  Receipt Date: 20220627
  Transmission Date: 20220721
  Serious: Yes (Disabling, Other)
  Sender: FDA-Public Use
  Company Number: GT-AstraZeneca-2022A220377

PATIENT
  Age: 45 Year
  Sex: Female

DRUGS (1)
  1. METOPROLOL SUCCINATE [Suspect]
     Active Substance: METOPROLOL SUCCINATE
     Indication: Cardiac disorder
     Route: 048
     Dates: start: 202202

REACTIONS (3)
  - Gait disturbance [Unknown]
  - Intervertebral disc protrusion [Unknown]
  - Renal disorder [Unknown]

NARRATIVE: CASE EVENT DATE: 20150101
